FAERS Safety Report 7224993-2 (Version None)
Quarter: 2011Q1

REPORT INFORMATION
  Report Type: 
  Country: None (occurrence: None)
  Receive Date: 20110107
  Receipt Date: 20110107
  Transmission Date: 20110831
  Serious: Yes (Hospitalization, Disabling)
  Sender: FDA-Public Use
  Company Number: None

PATIENT
  Age: 52 Year
  Sex: Female
  Weight: 99.7913 kg

DRUGS (1)
  1. ZOFRAN [Suspect]
     Indication: NAUSEA
     Dosage: 2 SHOTS
     Dates: start: 20090814, end: 20090814

REACTIONS (3)
  - DYSTONIA [None]
  - HYPOAESTHESIA [None]
  - DYSARTHRIA [None]
